FAERS Safety Report 5780460-4 (Version None)
Quarter: 2008Q2

REPORT INFORMATION
  Report Type: 
  Country: None (occurrence: None)
  Receive Date: 20080620
  Receipt Date: 20080610
  Transmission Date: 20081010
  Serious: Yes (Other)
  Sender: FDA-Public Use
  Company Number: JP-BRISTOL-MYERS SQUIBB COMPANY-14230742

PATIENT
  Sex: Male

DRUGS (1)
  1. ENDOXAN [Suspect]
     Indication: SYSTEMIC LUPUS ERYTHEMATOSUS
     Dosage: DOSAGE FORM - TABLET, ALSO GIVEN IN THE FORM OF INTRAVENOUS THERAPY
     Route: 048

REACTIONS (1)
  - HYPOGAMMAGLOBULINAEMIA [None]
